FAERS Safety Report 22606458 (Version 2)
Quarter: 2023Q2

REPORT INFORMATION
  Report Type: Spontaneous
  Country: US (occurrence: US)
  Receive Date: 20230615
  Receipt Date: 20230620
  Transmission Date: 20230722
  Serious: No
  Sender: FDA-Public Use
  Company Number: US-BRISTOL-MYERS SQUIBB COMPANY-2023-084639

PATIENT
  Age: 58 Year
  Sex: Female

DRUGS (2)
  1. REVLIMID [Suspect]
     Active Substance: LENALIDOMIDE
     Indication: Plasma cell myeloma
     Dosage: FREQUENCY: DAYS 1-14 OF 28 DAYS
     Route: 048
     Dates: start: 20210406
  2. REVLIMID [Suspect]
     Active Substance: LENALIDOMIDE
     Route: 048
     Dates: start: 20190627

REACTIONS (6)
  - Laboratory test abnormal [Unknown]
  - Limb discomfort [Unknown]
  - Off label use [Unknown]
  - Liver function test increased [Unknown]
  - Blood blister [Recovering/Resolving]
  - Infection [Recovering/Resolving]
